FAERS Safety Report 6763122-6 (Version None)
Quarter: 2010Q2

REPORT INFORMATION
  Report Type: 
  Country: None (occurrence: None)
  Receive Date: 20100609
  Receipt Date: 20100528
  Transmission Date: 20101027
  Serious: Yes (Other)
  Sender: FDA-Public Use
  Company Number: US-WYE-H15451510

PATIENT
  Sex: Male
  Weight: 78.54 kg

DRUGS (12)
  1. PROTONIX [Suspect]
     Indication: GASTRIC PH DECREASED
     Route: 048
     Dates: start: 19980101, end: 20000101
  2. PROTONIX [Suspect]
     Route: 048
     Dates: start: 20000101, end: 20090101
  3. ACETYLSALICYLIC ACID [Concomitant]
     Dosage: 81MG, FREQUENCY UNKNOWN
  4. ENALAPRIL [Concomitant]
  5. PAROXETINE HCL [Concomitant]
  6. GLYCERYL TRINITRATE [Concomitant]
  7. ACYCLOVIR [Concomitant]
  8. FOLIC ACID [Concomitant]
  9. ATORVASTATIN [Concomitant]
  10. HYDROCODONE [Concomitant]
  11. ATENOLOL [Concomitant]
  12. PREDNISONE [Concomitant]

REACTIONS (4)
  - CORONARY ARTERY OCCLUSION [None]
  - DIZZINESS [None]
  - PALPITATIONS [None]
  - RHEUMATOID ARTHRITIS [None]
